FAERS Safety Report 9501649 (Version 1)
Quarter: 2013Q1

REPORT INFORMATION
  Report Type: Spontaneous
  Country: US (occurrence: None)
  Receive Date: 20130107
  Receipt Date: 20130107
  Transmission Date: 20140127
  Serious: No
  Sender: FDA-Public Use
  Company Number: PHEH2012US017830

PATIENT
  Age: 54 Year
  Sex: Female

DRUGS (5)
  1. GILENYA (FTY) CAPSULE, 0.5MG [Suspect]
     Indication: MULTIPLE SCLEROSIS
     Route: 048
     Dates: start: 20120830
  2. BACLOFEN (BACLOFEN) [Concomitant]
  3. PROVIGIL (MODAFINIL) [Concomitant]
  4. SETRALINE [Concomitant]
  5. HERIZANT [Concomitant]

REACTIONS (7)
  - Influenza like illness [None]
  - Chills [None]
  - Fatigue [None]
  - Nausea [None]
  - Feeling abnormal [None]
  - Musculoskeletal stiffness [None]
  - Inappropriate schedule of drug administration [None]
